FAERS Safety Report 20624220 (Version 5)
Quarter: 2022Q4

REPORT INFORMATION
  Report Type: Spontaneous
  Country: JP (occurrence: JP)
  Receive Date: 20220322
  Receipt Date: 20221207
  Transmission Date: 20230112
  Serious: Yes (Other)
  Sender: FDA-Public Use
  Company Number: JP-CHUGAI-2022009228

PATIENT
  Age: 85 Year
  Sex: Male

DRUGS (5)
  1. ROZLYTREK [Suspect]
     Active Substance: ENTRECTINIB
     Indication: Non-small cell lung cancer
     Dosage: 600 MILLIGRAM, QD
     Route: 048
     Dates: start: 20220202, end: 20220210
  2. ROZLYTREK [Suspect]
     Active Substance: ENTRECTINIB
     Dosage: UNK
     Route: 048
     Dates: start: 20220216, end: 20220225
  3. ROZLYTREK [Suspect]
     Active Substance: ENTRECTINIB
     Dosage: 200 MILLIGRAM
     Route: 048
     Dates: start: 20220302, end: 20220425
  4. ROZLYTREK [Suspect]
     Active Substance: ENTRECTINIB
     Dosage: UNK
     Route: 048
  5. ROZLYTREK [Suspect]
     Active Substance: ENTRECTINIB
     Dosage: UNK
     Route: 048

REACTIONS (2)
  - Renal impairment [Not Recovered/Not Resolved]
  - Off label use [Unknown]

NARRATIVE: CASE EVENT DATE: 20220210
